FAERS Safety Report 17611462 (Version 1)
Quarter: 2020Q2

REPORT INFORMATION
  Report Type: Spontaneous
  Country: JP (occurrence: JP)
  Receive Date: 20200401
  Receipt Date: 20200401
  Transmission Date: 20200713
  Serious: Yes (Other)
  Sender: FDA-Public Use
  Company Number: JP-PFIZER INC-2019078393

PATIENT
  Age: 86 Year
  Sex: Female
  Weight: 43 kg

DRUGS (2)
  1. INLYTA [Suspect]
     Active Substance: AXITINIB
     Indication: RENAL CELL CARCINOMA
     Dosage: 5 MG, 2X/DAY
     Route: 048
     Dates: start: 20180611, end: 20180615
  2. INLYTA [Suspect]
     Active Substance: AXITINIB
     Dosage: 3 MG, 2X/DAY
     Route: 048
     Dates: start: 20180629, end: 20180921

REACTIONS (5)
  - Condition aggravated [Recovering/Resolving]
  - Diarrhoea [Recovered/Resolved]
  - Hypothyroidism [Recovering/Resolving]
  - Drug-induced liver injury [Unknown]
  - Neutrophil count decreased [Unknown]

NARRATIVE: CASE EVENT DATE: 20180615
